FAERS Safety Report 7333514-5 (Version None)
Quarter: 2011Q1

REPORT INFORMATION
  Report Type: 
  Country: None (occurrence: None)
  Receive Date: 20110304
  Receipt Date: 20110218
  Transmission Date: 20110831
  Serious: Yes (Hospitalization)
  Sender: FDA-Public Use
  Company Number: US-CELGENEUS-163-21880-11022632

PATIENT
  Sex: Female

DRUGS (3)
  1. VITAMIN B-12 [Concomitant]
     Route: 050
  2. REVLIMID [Suspect]
     Dosage: 7.5 MILLIGRAM
     Route: 048
     Dates: start: 20110113
  3. REVLIMID [Suspect]
     Indication: MULTIPLE MYELOMA
     Dosage: 7.5 MILLIGRAM
     Route: 048
     Dates: start: 20090612, end: 20100617

REACTIONS (2)
  - HYPERGLYCAEMIA [None]
  - FATIGUE [None]
